FAERS Safety Report 6248424-4 (Version None)
Quarter: 2009Q2

REPORT INFORMATION
  Report Type: 
  Country: None (occurrence: None)
  Receive Date: 20090629
  Receipt Date: 20090625
  Transmission Date: 20091009
  Serious: Yes (Death)
  Sender: FDA-Public Use
  Company Number: PHHY2009IT25626

PATIENT
  Sex: Female

DRUGS (2)
  1. CYCLOSPORINE [Suspect]
     Indication: LIVER TRANSPLANT
     Dosage: UNK
  2. STEROIDS NOS [Suspect]
     Indication: LIVER TRANSPLANT
     Dosage: UNK

REACTIONS (1)
  - HEAD AND NECK CANCER [None]
